FAERS Safety Report 6300422-8 (Version None)
Quarter: 2009Q3

REPORT INFORMATION
  Report Type: 
  Country: None (occurrence: None)
  Receive Date: 20090806
  Receipt Date: 20080916
  Transmission Date: 20100115
  Serious: No
  Sender: FDA-Public Use
  Company Number: US-ABBOTT-08P-163-0476841-00

PATIENT
  Sex: Female
  Weight: 54.48 kg

DRUGS (3)
  1. DEPAKOTE ER [Suspect]
     Indication: BIPOLAR DISORDER
     Route: 048
  2. LEVOTHYROXINE [Concomitant]
     Indication: HYPOTHYROIDISM
     Route: 048
  3. LORATADINE [Concomitant]
     Indication: ALLERGIC SINUSITIS
     Route: 048

REACTIONS (1)
  - BONE DENSITY DECREASED [None]
